FAERS Safety Report 19408187 (Version 1)
Quarter: 2021Q2

REPORT INFORMATION
  Report Type: Spontaneous
  Country: US (occurrence: US)
  Receive Date: 20210611
  Receipt Date: 20210611
  Transmission Date: 20210717
  Serious: No
  Sender: FDA-Public Use
  Company Number: US-009507513-2105USA003827

PATIENT
  Age: 77 Year
  Sex: Female

DRUGS (1)
  1. KEYTRUDA [Suspect]
     Active Substance: PEMBROLIZUMAB
     Indication: NASAL SINUS CANCER
     Route: 042

REACTIONS (4)
  - Abdominal discomfort [Unknown]
  - Tooth extraction [Unknown]
  - Cyst [Unknown]
  - Biopsy [Unknown]
